FAERS Safety Report 19743060 (Version 2)
Quarter: 2021Q3

REPORT INFORMATION
  Report Type: Report from Study
  Country: AU (occurrence: AU)
  Receive Date: 20210825
  Receipt Date: 20210831
  Transmission Date: 20211014
  Serious: Yes (Hospitalization)
  Sender: FDA-Public Use
  Company Number: AU-BRISTOL-MYERS SQUIBB COMPANY-BMS-2021-082565

PATIENT
  Age: 60 Year
  Sex: Male

DRUGS (11)
  1. ANORO ELLIPTA [Concomitant]
     Active Substance: UMECLIDINIUM BROMIDE\VILANTEROL TRIFENATATE
     Indication: CHRONIC OBSTRUCTIVE PULMONARY DISEASE
     Dosage: 1 PUFF
     Dates: start: 2019
  2. COVID?19 VACCINE [Concomitant]
     Indication: COVID-19 IMMUNISATION
     Dosage: 1 DOSE
     Route: 030
     Dates: start: 20210518, end: 20210518
  3. CALTRATE WITH VITAMIN D [Concomitant]
     Active Substance: CALCIUM CARBONATE\CHOLECALCIFEROL
     Indication: HYPOCALCAEMIA
     Dosage: 2 TABLETS 600 MG/5000 MCG
     Route: 048
     Dates: start: 20210701
  4. PANADOL [Concomitant]
     Active Substance: ACETAMINOPHEN
     Indication: ARTHRALGIA
     Dosage: 500 MG X2 PRN
     Route: 048
     Dates: start: 20210712, end: 20210715
  5. NIVOLUMAB [Suspect]
     Active Substance: NIVOLUMAB
     Indication: MALIGNANT MELANOMA
     Dosage: 119 MILLIGRAM
     Route: 042
     Dates: start: 20210701, end: 20210722
  6. DENOSUMAB [Suspect]
     Active Substance: DENOSUMAB
     Indication: MALIGNANT MELANOMA
     Dosage: 120 MILLIGRAM
     Route: 058
     Dates: start: 20210701, end: 20210715
  7. HYDROCORTISONE ACETATE. [Concomitant]
     Active Substance: HYDROCORTISONE ACETATE
     Indication: RASH
     Dosage: 20 MILLILITER, QD
     Route: 061
     Dates: start: 20210722
  8. IPILIMUMAB [Suspect]
     Active Substance: IPILIMUMAB
     Indication: MALIGNANT MELANOMA
     Dosage: 357 MILLIGRAM
     Route: 042
     Dates: start: 20210701, end: 20210722
  9. AVAMYS [Concomitant]
     Active Substance: FLUTICASONE FUROATE
     Indication: CHRONIC OBSTRUCTIVE PULMONARY DISEASE
     Dosage: 2 APPLICATIONS (INTRANASAL)
     Route: 045
     Dates: start: 2019
  10. PETER MAC MOUTHWASH POWDER [Concomitant]
     Active Substance: METHYL SALICYLATE\PEPPERMINT OIL\SODIUM BICARBONATE\SODIUM CHLORIDE
     Indication: DRY MOUTH
     Dosage: 1 SACHET PRN
     Route: 048
     Dates: start: 20210715
  11. NUROFEN [IBUPROFEN] [Concomitant]
     Active Substance: IBUPROFEN
     Indication: ARTHRALGIA
     Dosage: 200 X 2 PRN
     Route: 048
     Dates: start: 20210712, end: 20210715

REACTIONS (2)
  - Hypopituitarism [Recovered/Resolved with Sequelae]
  - Haemoptysis [Recovered/Resolved]

NARRATIVE: CASE EVENT DATE: 20210725
